FAERS Safety Report 23807700 (Version 1)
Quarter: 2024Q2

REPORT INFORMATION
  Report Type: Spontaneous
  Country: CA (occurrence: CA)
  Receive Date: 20240502
  Receipt Date: 20240502
  Transmission Date: 20240715
  Serious: Yes (Other)
  Sender: FDA-Public Use
  Company Number: CA-MLMSERVICE-20230329-4188185-1

PATIENT
  Age: 37 Year
  Sex: Male

DRUGS (11)
  1. GABAPENTIN [Suspect]
     Active Substance: GABAPENTIN
     Indication: Drug use disorder
     Dosage: 1200 MILLIGRAM, ONCE A DAY
     Route: 065
  2. GABAPENTIN [Suspect]
     Active Substance: GABAPENTIN
     Dosage: 900 MILLIGRAM, ONCE A DAY
     Route: 065
  3. ACETAMINOPHEN\DEXTROMETHORPHAN\DOXYLAMINE\PSEUDOEPHEDRINE [Suspect]
     Active Substance: ACETAMINOPHEN\DEXTROMETHORPHAN\DOXYLAMINE\PSEUDOEPHEDRINE
     Indication: Insomnia
     Dosage: UNK
     Route: 065
  4. ACETAMINOPHEN\DEXTROMETHORPHAN\DOXYLAMINE\PSEUDOEPHEDRINE [Suspect]
     Active Substance: ACETAMINOPHEN\DEXTROMETHORPHAN\DOXYLAMINE\PSEUDOEPHEDRINE
     Indication: Anxiety
  5. VICKS NYQUIL [Concomitant]
     Active Substance: ACETAMINOPHEN\DEXTROMETHORPHAN HYDROBROMIDE\DOXYLAMINE SUCCINATE
     Indication: Insomnia
     Dosage: ONCE A DAY (2-3 BOTTLES (354 ML BOTTLES, 354 MG DXM) NIGHTLY)
     Route: 065
  6. VICKS NYQUIL [Concomitant]
     Active Substance: ACETAMINOPHEN\DEXTROMETHORPHAN HYDROBROMIDE\DOXYLAMINE SUCCINATE
     Indication: Anxiety
     Dosage: UNK (1 BOTTLE EVERY 2-3 DAYS)
     Route: 065
  7. VICKS NYQUIL [Concomitant]
     Active Substance: ACETAMINOPHEN\DEXTROMETHORPHAN HYDROBROMIDE\DOXYLAMINE SUCCINATE
     Dosage: 1 DOSAGE FORM, ONCE A DAY
     Route: 065
  8. NALTREXONE [Concomitant]
     Active Substance: NALTREXONE
     Indication: Drug use disorder
     Dosage: 100 MILLIGRAM, ONCE A DAY
     Route: 065
  9. NALTREXONE [Concomitant]
     Active Substance: NALTREXONE
     Dosage: 50 MILLIGRAM, ONCE A DAY
     Route: 065
  10. NALTREXONE [Concomitant]
     Active Substance: NALTREXONE
     Dosage: 25 MILLIGRAM, ONCE A DAY
     Route: 065
  11. MIRTAZAPINE [Concomitant]
     Active Substance: MIRTAZAPINE
     Indication: Depression
     Dosage: 30 MILLIGRAM, EVERY HOUR
     Route: 065

REACTIONS (5)
  - Sedation [Recovering/Resolving]
  - Rebound effect [Recovering/Resolving]
  - Off label use [Recovering/Resolving]
  - Intentional overdose [Recovering/Resolving]
  - Intentional product misuse [Recovering/Resolving]
